FAERS Safety Report 7533505-5 (Version None)
Quarter: 2011Q2

REPORT INFORMATION
  Report Type: 
  Country: None (occurrence: None)
  Receive Date: 20110608
  Receipt Date: 20060127
  Transmission Date: 20111010
  Serious: Yes (Hospitalization)
  Sender: FDA-Public Use
  Company Number: PHFR2006GB00447

PATIENT
  Sex: Female

DRUGS (1)
  1. CLOZAPINE [Suspect]
     Indication: SCHIZOPHRENIA
     Dosage: 300 MG, UNK
     Route: 048
     Dates: start: 20051215, end: 20060122

REACTIONS (8)
  - INFLUENZA LIKE ILLNESS [None]
  - VOMITING [None]
  - HYPOTENSION [None]
  - BODY TEMPERATURE INCREASED [None]
  - PLEURAL EFFUSION [None]
  - DIARRHOEA [None]
  - BACTERIAL INFECTION [None]
  - BLOOD COUNT ABNORMAL [None]
